FAERS Safety Report 25983616 (Version 1)
Quarter: 2025Q4

REPORT INFORMATION
  Report Type: Spontaneous
  Country: EU (occurrence: EU)
  Receive Date: 20251031
  Receipt Date: 20251031
  Transmission Date: 20260118
  Serious: Yes (Hospitalization)
  Sender: BAUSCH AND LOMB
  Company Number: EU-ONCOPEPPR-00987

PATIENT
  Age: 81 Year
  Sex: Male

DRUGS (13)
  1. DEXAMETHASONE [Suspect]
     Active Substance: DEXAMETHASONE
     Indication: Product used for unknown indication
     Route: 065
  2. MELPHALAN FLUFENAMIDE HYDROCHLORIDE [Suspect]
     Active Substance: MELPHALAN FLUFENAMIDE HYDROCHLORIDE
     Indication: Plasma cell myeloma
     Route: 065
     Dates: start: 20240926
  3. SPIRONOLACTONE [Concomitant]
     Active Substance: SPIRONOLACTONE
     Indication: Hypertension
     Dates: start: 2018
  4. PANTOPRAZOLE SODIUM [Concomitant]
     Active Substance: PANTOPRAZOLE SODIUM
     Indication: Prophylaxis
     Route: 048
     Dates: start: 2019
  5. BISOPROLOL [Concomitant]
     Active Substance: BISOPROLOL
     Indication: Hypertension
     Route: 048
     Dates: start: 2006
  6. HYDROMORPHONE [Concomitant]
     Active Substance: HYDROMORPHONE
     Indication: Pain
     Route: 048
     Dates: start: 201911
  7. APIXABAN [Concomitant]
     Active Substance: APIXABAN
     Indication: Hypertension
     Route: 048
     Dates: start: 2019
  8. ATORVASTATIN [Concomitant]
     Active Substance: ATORVASTATIN
     Indication: Hypertension
     Route: 048
     Dates: start: 2023
  9. PREGABALIN [Concomitant]
     Active Substance: PREGABALIN
     Indication: Pain
     Route: 048
     Dates: start: 201901
  10. CHOLECALCIFEROL [Concomitant]
     Active Substance: CHOLECALCIFEROL
     Indication: Prophylaxis
     Dosage: DOSAGE: 20000 IE
     Route: 048
     Dates: start: 2018
  11. ALLOPURINOL [Concomitant]
     Active Substance: ALLOPURINOL
     Indication: Chronic kidney disease
     Route: 048
     Dates: start: 2018
  12. NATRIUMHYDROGENCARBONATE [Concomitant]
     Indication: Chronic kidney disease
     Route: 048
     Dates: start: 2022
  13. TAMSULOSIN [Concomitant]
     Active Substance: TAMSULOSIN
     Indication: Benign neoplasm of prostate
     Route: 048

REACTIONS (1)
  - Prostatitis [Recovered/Resolved]

NARRATIVE: CASE EVENT DATE: 20241120
